FAERS Safety Report 9272875 (Version 1)
Quarter: 2013Q2

REPORT INFORMATION
  Report Type: Spontaneous
  Country: US (occurrence: US)
  Receive Date: 20130506
  Receipt Date: 20130506
  Transmission Date: 20140414
  Serious: No
  Sender: FDA-Public Use
  Company Number: US-ALEXION-A201300694

PATIENT
  Age: 58 Year
  Sex: Female
  Weight: 52.93 kg

DRUGS (3)
  1. SOLIRIS 300MG [Suspect]
     Indication: PAROXYSMAL NOCTURNAL HAEMOGLOBINURIA
  2. FOLIC ACID [Concomitant]
     Dosage: 1 MG, BID
  3. IMITREX [Concomitant]
     Indication: MIGRAINE
     Dosage: UNK

REACTIONS (3)
  - Haemoglobin decreased [Not Recovered/Not Resolved]
  - Fatigue [Not Recovered/Not Resolved]
  - Haemolysis [Recovered/Resolved]
